FAERS Safety Report 17910569 (Version 1)
Quarter: 2020Q2

REPORT INFORMATION
  Report Type: Report from Study
  Country: US (occurrence: US)
  Receive Date: 20200618
  Receipt Date: 20200618
  Transmission Date: 20200714
  Serious: Yes (Disabling)
  Sender: FDA-Public Use
  Company Number: US-KARYOPHARM THERAPEUTICS, INC.-2020KPT000636

PATIENT
  Age: 76 Year
  Sex: Female
  Weight: 71.6 kg

DRUGS (13)
  1. PERIDEX [Concomitant]
     Active Substance: CHLORHEXIDINE GLUCONATE
     Indication: DENTAL DISORDER PROPHYLAXIS
     Dosage: 15 ML, BID
     Route: 048
     Dates: start: 20200531
  2. HEPARIN [Concomitant]
     Active Substance: HEPARIN SODIUM
     Indication: THROMBOSIS PROPHYLAXIS
     Dosage: 5000 IU, Q8H
     Route: 058
     Dates: start: 20200531
  3. ATIVAN [Concomitant]
     Active Substance: LORAZEPAM
     Indication: CATATONIA
     Dosage: 0.5 MG, TID
     Dates: start: 20200604, end: 20200607
  4. CEFTRIAXONE. [Concomitant]
     Active Substance: CEFTRIAXONE
     Indication: COVID-19
     Dosage: 1 G, QD
     Route: 042
     Dates: start: 20200601, end: 20200603
  5. ACETAMINOPHEN. [Concomitant]
     Active Substance: ACETAMINOPHEN
     Indication: COVID-19
  6. REMDESIVIR. [Concomitant]
     Active Substance: REMDESIVIR
     Dosage: 100 MG, QD
     Route: 042
     Dates: start: 20200602, end: 20200605
  7. ACETAMINOPHEN. [Concomitant]
     Active Substance: ACETAMINOPHEN
     Indication: PAIN
     Dosage: 650 MG, Q4H PRN
     Route: 048
     Dates: start: 20200601
  8. POTASSIUM CHLORIDE. [Concomitant]
     Active Substance: POTASSIUM CHLORIDE
     Indication: HYPOKALAEMIA
  9. DOXYCYCLINE. [Concomitant]
     Active Substance: DOXYCYCLINE
     Indication: COVID-19
     Dosage: 100 MG, BID
     Route: 048
     Dates: start: 20200601, end: 20200603
  10. SELINEXOR [Suspect]
     Active Substance: SELINEXOR
     Indication: COVID-19
     Dates: start: 20200601, end: 20200605
  11. ACETAMINOPHEN. [Concomitant]
     Active Substance: ACETAMINOPHEN
     Indication: PYREXIA
  12. REMDESIVIR. [Concomitant]
     Active Substance: REMDESIVIR
     Indication: COVID-19
     Dosage: 200 MG, SINGLE
     Route: 042
     Dates: start: 20200601, end: 20200601
  13. POTASSIUM CHLORIDE. [Concomitant]
     Active Substance: POTASSIUM CHLORIDE
     Indication: COVID-19
     Dosage: 40 MEQ
     Route: 042
     Dates: start: 20200606

REACTIONS (1)
  - Delirium [Not Recovered/Not Resolved]

NARRATIVE: CASE EVENT DATE: 20200607
